FAERS Safety Report 14209695 (Version 2)
Quarter: 2018Q1

REPORT INFORMATION
  Report Type: Spontaneous
  Country: US (occurrence: US)
  Receive Date: 20171121
  Receipt Date: 20180212
  Transmission Date: 20180508
  Serious: No
  Sender: FDA-Public Use
  Company Number: US-PFIZER INC-2017495753

PATIENT
  Age: 16 Year
  Sex: Male

DRUGS (1)
  1. DEPO-TESTOSTERONE [Suspect]
     Active Substance: TESTOSTERONE CYPIONATE
     Indication: HYPOGONADISM MALE
     Dosage: 50 MG, MONTHLY
     Route: 030
     Dates: start: 201701

REACTIONS (5)
  - Erection increased [Unknown]
  - Hypertrichosis [Unknown]
  - Acne [Unknown]
  - Anxiety [Unknown]
  - Dysphonia [Unknown]
